FAERS Safety Report 20749602 (Version 1)
Quarter: 2022Q2

REPORT INFORMATION
  Report Type: Spontaneous
  Country: US (occurrence: None)
  Receive Date: 20220422
  Receipt Date: 20220422
  Transmission Date: 20220721
  Serious: Yes (Other)
  Sender: FDA-Public Use
  Company Number: None

PATIENT
  Age: 26 Year
  Sex: Female
  Weight: 94.5 kg

DRUGS (2)
  1. SODIUM IODIDE I-131 [Suspect]
     Active Substance: SODIUM IODIDE I-131
     Indication: Thyroid cancer
  2. LEVOTHYROXINE [Concomitant]
     Active Substance: LEVOTHYROXINE

REACTIONS (1)
  - Premature menopause [None]

NARRATIVE: CASE EVENT DATE: 20171015
